FAERS Safety Report 7489349-6 (Version None)
Quarter: 2011Q2

REPORT INFORMATION
  Report Type: 
  Country: None (occurrence: None)
  Receive Date: 20110518
  Receipt Date: 20110513
  Transmission Date: 20111010
  Serious: Yes (Death, Hospitalization, Other)
  Sender: FDA-Public Use
  Company Number: JP-PFIZER INC-2011029441

PATIENT
  Age: 67 Year
  Sex: Female
  Weight: 47 kg

DRUGS (12)
  1. MELILOT [Concomitant]
     Dosage: 2 DF, 2X/DAY
     Route: 048
     Dates: end: 20110207
  2. NITOROL R [Concomitant]
     Dosage: 1 DF, 2X/DAY
     Route: 048
     Dates: end: 20110207
  3. HERBESSER ^TANABE^ [Concomitant]
     Dosage: 30 MG, 3X/DAY
     Route: 048
  4. LEVOTHYROXINE SODIUM [Concomitant]
     Dosage: 25 UG, 1X/DAY
     Route: 048
     Dates: start: 20100831
  5. LOSARTAN POTASSIUM [Concomitant]
     Dosage: 1 DF, 1X/DAY
     Route: 048
     Dates: end: 20110210
  6. CODEINE PHOSPHATE [Concomitant]
     Indication: COUGH
     Dosage: 20 MG, 2X/DAY
     Route: 048
     Dates: start: 20100924
  7. LIPITOR [Suspect]
     Indication: HYPERCHOLESTEROLAEMIA
     Dosage: 1 TABLET DAILY
     Route: 048
     Dates: end: 20110207
  8. SUTENT [Suspect]
     Indication: RENAL CELL CARCINOMA
     Dosage: 37.5 MG, 1X/DAY
     Route: 048
     Dates: start: 20100817, end: 20110204
  9. ALDACTONE [Concomitant]
     Indication: PLEURAL EFFUSION
     Dosage: 25 MG, 1X/DAY
     Route: 048
     Dates: start: 20101008
  10. CLOTIAZEPAM [Concomitant]
     Dosage: UNK, 3X/DAY
     Route: 048
     Dates: end: 20110207
  11. LIPITOR [Suspect]
     Indication: BLOOD CHOLESTEROL ABNORMAL
  12. LASIX [Concomitant]
     Indication: PLEURAL EFFUSION
     Dosage: 20 MG, 1X/DAY
     Route: 048
     Dates: start: 20101008

REACTIONS (3)
  - RHABDOMYOLYSIS [None]
  - DISEASE PROGRESSION [None]
  - RENAL CELL CARCINOMA [None]
